FAERS Safety Report 9094593 (Version 3)
Quarter: 2013Q1

REPORT INFORMATION
  Report Type: Spontaneous
  Country: CO (occurrence: CO)
  Receive Date: 20130219
  Receipt Date: 20130312
  Transmission Date: 20140127
  Serious: Yes (Other)
  Sender: FDA-Public Use
  Company Number: CO-BAXTER-2013BAX006074

PATIENT
  Sex: Female

DRUGS (2)
  1. SEVOFLURANO [Suspect]
     Indication: ANAESTHESIA
     Dates: start: 20130207, end: 20130207
  2. ISOFLURANO [Suspect]
     Indication: ANAESTHESIA
     Dates: start: 20130207, end: 20130207

REACTIONS (2)
  - Anaesthetic complication [Recovered/Resolved]
  - Unwanted awareness during anaesthesia [Recovered/Resolved]
